FAERS Safety Report 4751054-4 (Version None)
Quarter: 2005Q3

REPORT INFORMATION
  Report Type: 
  Country: None (occurrence: None)
  Receive Date: 20050822
  Receipt Date: 20050808
  Transmission Date: 20060218
  Serious: Yes (Hospitalization)
  Sender: FDA-Public Use
  Company Number: 2005BI012026

PATIENT
  Age: 40 Year
  Sex: Female

DRUGS (3)
  1. AVONEX [Suspect]
     Indication: MULTIPLE SCLEROSIS
     Dosage: 30 UG;QW; IM
     Route: 030
     Dates: start: 20050303
  2. AUGMENTIN '125' [Concomitant]
  3. PREDNISONE TAB [Concomitant]

REACTIONS (8)
  - BODY TEMPERATURE INCREASED [None]
  - CHRONIC OBSTRUCTIVE PULMONARY DISEASE [None]
  - COUGH [None]
  - DENTAL OPERATION [None]
  - HEADACHE [None]
  - HYPOTENSION [None]
  - IMMUNOSUPPRESSION [None]
  - PHARYNGITIS STREPTOCOCCAL [None]
